FAERS Safety Report 19116621 (Version 1)
Quarter: 2021Q2

REPORT INFORMATION
  Report Type: Spontaneous
  Country: FR (occurrence: FR)
  Receive Date: 20210409
  Receipt Date: 20210409
  Transmission Date: 20210717
  Serious: Yes (Other)
  Sender: FDA-Public Use
  Company Number: FR-GUERBET-FR-20210111

PATIENT
  Age: 67 Year
  Sex: Female
  Weight: 70 kg

DRUGS (8)
  1. CEFAZOLINE MYLAN [Suspect]
     Active Substance: CEFAZOLIN SODIUM
     Indication: ANTIBIOTIC PROPHYLAXIS
     Route: 042
     Dates: start: 20210225, end: 20210225
  2. PROPOFOL. [Suspect]
     Active Substance: PROPOFOL
     Indication: ANAESTHESIA
     Route: 042
     Dates: start: 20210225, end: 20210225
  3. KETAMINE RENAUDIN [Suspect]
     Active Substance: KETAMINE
     Indication: ANAESTHESIA
     Route: 042
     Dates: start: 20210225, end: 20210225
  4. PARACETAMOL [Concomitant]
     Active Substance: ACETAMINOPHEN
     Indication: PRODUCT USED FOR UNKNOWN INDICATION
     Route: 065
  5. CONTRAMAL 100 MG/2 ML, SOLUTION INJECTABLE [Suspect]
     Active Substance: TRAMADOL HYDROCHLORIDE
     Indication: PAIN
     Route: 042
     Dates: start: 20210225, end: 20210225
  6. ATRACURIUM HOSPIRA [Suspect]
     Active Substance: ATRACURIUM BESYLATE
     Indication: ANAESTHESIA
     Route: 042
     Dates: start: 20210225, end: 20210225
  7. OPTIJECT [Suspect]
     Active Substance: IOVERSOL
     Indication: SCAN WITH CONTRAST
     Route: 042
     Dates: start: 20210223, end: 20210223
  8. SUFENTANIL MYLAN [Suspect]
     Active Substance: SUFENTANIL
     Indication: ANAESTHESIA
     Route: 005
     Dates: start: 20210225, end: 20210225

REACTIONS (1)
  - Rash morbilliform [Recovering/Resolving]

NARRATIVE: CASE EVENT DATE: 20210226
